FAERS Safety Report 7777046-9 (Version None)
Quarter: 2011Q3

REPORT INFORMATION
  Report Type: 
  Country: None (occurrence: None)
  Receive Date: 20110926
  Receipt Date: 20110926
  Transmission Date: 20111222
  Serious: Yes (Other)
  Sender: FDA-Public Use
  Company Number: None

PATIENT
  Age: 49 Year
  Sex: Male
  Weight: 76.657 kg

DRUGS (1)
  1. SIMVASTATIN [Suspect]
     Indication: MYOCARDIAL INFARCTION
     Dosage: 40MG
     Route: 048
     Dates: start: 20110110, end: 20110715

REACTIONS (3)
  - MUSCULAR WEAKNESS [None]
  - MUSCLE ATROPHY [None]
  - FATIGUE [None]
